FAERS Safety Report 8011359-0 (Version None)
Quarter: 2011Q4

REPORT INFORMATION
  Report Type: 
  Country: None (occurrence: None)
  Receive Date: 20111228
  Receipt Date: 20111228
  Transmission Date: 20120403
  Serious: Yes (Hospitalization)
  Sender: FDA-Public Use
  Company Number: None

PATIENT
  Age: 51 Year
  Sex: Female
  Weight: 116 kg

DRUGS (4)
  1. VANCOMYCIN HYCHLORIDE [Suspect]
     Indication: STAPHYLOCOCCAL SEPSIS
     Dosage: 1.5 GRAMS
     Route: 042
     Dates: start: 20110702, end: 20110706
  2. LEVOTHYROXINE SODIUM [Concomitant]
  3. FERROUS SULFATE TAB [Concomitant]
  4. OMEPRAZOLE [Concomitant]

REACTIONS (3)
  - SEPTIC SHOCK [None]
  - ABDOMINAL WALL ABSCESS [None]
  - ANAEMIA [None]
